FAERS Safety Report 24036031 (Version 1)
Quarter: 2024Q2

REPORT INFORMATION
  Report Type: Spontaneous
  Country: US (occurrence: None)
  Receive Date: 20240629
  Receipt Date: 20240629
  Transmission Date: 20240716
  Serious: Yes (Hospitalization)
  Sender: FDA-Public Use
  Company Number: None

PATIENT
  Sex: Female

DRUGS (1)
  1. MYCOPHENOLIC ACID [Suspect]
     Active Substance: MYCOPHENOLIC ACID
     Indication: Granulomatosis with polyangiitis
     Dosage: 720MG TWICE DAILY ORAL
     Route: 048
     Dates: start: 202201

REACTIONS (7)
  - Malaise [None]
  - Gastrointestinal infection [None]
  - Kidney infection [None]
  - Urinary tract infection [None]
  - Pyrexia [None]
  - Nausea [None]
  - Gastric infection [None]
